FAERS Safety Report 20902016 (Version 1)
Quarter: 2022Q2

REPORT INFORMATION
  Report Type: Other
  Country: DE (occurrence: DE)
  Receive Date: 20220601
  Receipt Date: 20220601
  Transmission Date: 20220721
  Serious: No
  Sender: FDA-Public Use
  Company Number: None

PATIENT
  Age: 56 Year
  Sex: Female

DRUGS (4)
  1. QUETIAPINE FUMARATE [Suspect]
     Active Substance: QUETIAPINE FUMARATE
     Indication: Product used for unknown indication
     Dosage: 150 MILLIGRAM, QD (INGESTION FOR ABOUT 1 YEAR)
     Route: 048
     Dates: start: 2021
  2. VALERIAN [Concomitant]
     Active Substance: VALERIAN
     Indication: Product used for unknown indication
     Dosage: UNK UNK, PRN (AS NECESSARY)
     Route: 065
  3. LEVOTHYROXINE SODIUM [Concomitant]
     Active Substance: LEVOTHYROXINE SODIUM
     Indication: Thyroid disorder
     Dosage: 25 MICROGRAM, QD (ONCE DAILY)
     Route: 065
  4. BISOPROLOL [Concomitant]
     Active Substance: BISOPROLOL
     Indication: Blood pressure increased
     Dosage: UNK UNK, PRN (AS NECESSARY)
     Route: 065

REACTIONS (6)
  - Restless legs syndrome [Unknown]
  - Headache [Unknown]
  - Breast enlargement [Unknown]
  - Oedema peripheral [Unknown]
  - Food craving [Unknown]
  - Weight increased [Unknown]

NARRATIVE: CASE EVENT DATE: 20210101
